FAERS Safety Report 5963836-1 (Version None)
Quarter: 2008Q4

REPORT INFORMATION
  Report Type: 
  Country: None (occurrence: None)
  Receive Date: 20081121
  Receipt Date: 20081121
  Transmission Date: 20090506
  Serious: Yes (Other)
  Sender: FDA-Public Use
  Company Number: None

PATIENT
  Sex: Female
  Weight: 81.6475 kg

DRUGS (1)
  1. MAXZIDE-25 [Suspect]
     Indication: HYPERTENSION
     Dosage: 50/25 QD PO
     Route: 048
     Dates: start: 20070205, end: 20080609

REACTIONS (1)
  - ILL-DEFINED DISORDER [None]
